FAERS Safety Report 4307576-3 (Version None)
Quarter: 2004Q1

REPORT INFORMATION
  Report Type: 
  Country: None (occurrence: None)
  Receive Date: 20040225
  Receipt Date: 20030204
  Transmission Date: 20041129
  Serious: Yes (Disabling)
  Sender: FDA-Public Use
  Company Number: WAES 01061428

PATIENT
  Age: 53 Year
  Sex: Female
  Weight: 51.7101 kg

DRUGS (7)
  1. ZOCOR [Suspect]
     Indication: HYPERCHOLESTEROLAEMIA
     Dosage: 10 MG/HS/PO
     Route: 048
     Dates: start: 20000901, end: 20010430
  2. CENTRUM [Concomitant]
  3. PREMPRO [Concomitant]
  4. FOLIC ACID [Concomitant]
  5. SELENIUM SULFIDE [Concomitant]
  6. VITAMIN B COMPLEX CAP [Concomitant]
  7. VITAMIN E [Concomitant]

REACTIONS (3)
  - BLOOD URINE PRESENT [None]
  - MYALGIA [None]
  - SUBCUTANEOUS NODULE [None]
